FAERS Safety Report 8814901 (Version 1)
Quarter: 2012Q4

REPORT INFORMATION
  Report Type: 
  Country: US (occurrence: US)
  Receive Date: 20120928
  Receipt Date: 20120928
  Transmission Date: 20130627
  Serious: No
  Sender: FDA-Public Use
  Company Number: US-PFIZER INC-2012239439

PATIENT
  Age: 86 Year

DRUGS (7)
  1. CARDURA [Suspect]
     Dosage: UNK
  2. ACTONEL [Suspect]
     Dosage: UNK
  3. MAXZIDE [Suspect]
     Dosage: UNK
  4. MIACALCIN [Suspect]
     Dosage: UNK
  5. ZOCOR [Suspect]
     Dosage: UNK
  6. PNEUMOVAX [Suspect]
     Dosage: UNK
  7. TALWIN [Suspect]
     Dosage: UNK

REACTIONS (1)
  - Drug hypersensitivity [Unknown]
